FAERS Safety Report 12556612 (Version 1)
Quarter: 2016Q3

REPORT INFORMATION
  Report Type: Spontaneous
  Country: US (occurrence: US)
  Receive Date: 20160714
  Receipt Date: 20160714
  Transmission Date: 20161109
  Serious: Yes (Other)
  Sender: FDA-Public Use
  Company Number: US-ABBVIE-16P-163-1672417-00

PATIENT
  Age: 22 Year
  Sex: Female

DRUGS (2)
  1. VICODIN [Suspect]
     Active Substance: ACETAMINOPHEN\HYDROCODONE BITARTRATE
     Indication: PAIN
     Route: 048
  2. LUPRON DEPOT [Suspect]
     Active Substance: LEUPROLIDE ACETATE
     Indication: ENDOMETRIOSIS
     Route: 050

REACTIONS (7)
  - Depression [Unknown]
  - Headache [Unknown]
  - Muscle spasms [Unknown]
  - Laparoscopy [Unknown]
  - Dysmenorrhoea [Unknown]
  - Back pain [Unknown]
  - Pain [Unknown]
